FAERS Safety Report 21770668 (Version 4)
Quarter: 2023Q1

REPORT INFORMATION
  Report Type: Report from Study
  Country: PT (occurrence: PT)
  Receive Date: 20221223
  Receipt Date: 20230127
  Transmission Date: 20230418
  Serious: Yes (Other)
  Sender: FDA-Public Use
  Company Number: PT-ABBVIE-4246068

PATIENT
  Age: 69 Year
  Sex: Male

DRUGS (10)
  1. CARBIDOPA\LEVODOPA [Suspect]
     Active Substance: CARBIDOPA\LEVODOPA
     Indication: Parkinson^s disease
     Dosage: 20 MG + 5 MG?MORN:15.5CC;MAINT:3.5CC/H;EXTRA:1.5CC?LAST ADMIN DATE: 2021
     Route: 050
     Dates: start: 20211123
  2. CARBIDOPA\LEVODOPA [Suspect]
     Active Substance: CARBIDOPA\LEVODOPA
     Dosage: 20 MG + 5 MG?20CC;MAINT:6.3CC/H;EXTRA:3.5CC
     Route: 050
     Dates: start: 2022
  3. Tamsulosin 0.4 Milligram [Concomitant]
     Indication: Product used for unknown indication
     Dosage: 1 TABLET?AT DINNER?0.4 MG
     Route: 048
  4. SINEMET CR [Concomitant]
     Active Substance: CARBIDOPA\LEVODOPA
     Indication: Product used for unknown indication
     Dosage: 200 + 50?AT BEDTIME
     Route: 048
  5. QUETIAPINE [Concomitant]
     Active Substance: QUETIAPINE
     Indication: Product used for unknown indication
     Dosage: 1 TABLET?AT MORNING?STRENGTH 25 MG
     Route: 048
  6. QUETIAPINE [Concomitant]
     Active Substance: QUETIAPINE
     Indication: Product used for unknown indication
     Dosage: 50 MILLIGRAM AT BEDTIME
  7. diazepam 5 Milligram [Concomitant]
     Indication: Product used for unknown indication
     Dosage: 1 TABLET?AT BEDTIME
     Route: 048
  8. carvedilol 6.25 Milligram [Concomitant]
     Indication: Product used for unknown indication
     Dosage: 12.5 MILLIGRAM?IN THE MORNING AND AT DINNER
     Route: 048
  9. paroxetine 20 Milligram [Concomitant]
     Indication: Product used for unknown indication
     Dosage: 1 TABLET?AT LUNCH
     Route: 048
  10. acetylsalicylic acid 100 Milligram [Concomitant]
     Indication: Product used for unknown indication
     Dosage: 1 TABLET?AT LUNCH?100 MG
     Route: 048

REACTIONS (4)
  - Injury [Recovered/Resolved]
  - Fall [Recovered/Resolved]
  - Periorbital haematoma [Recovered/Resolved]
  - Eyelid oedema [Recovered/Resolved]

NARRATIVE: CASE EVENT DATE: 20221219
